FAERS Safety Report 8500110-3 (Version None)
Quarter: 2012Q3

REPORT INFORMATION
  Report Type: 
  Country: None (occurrence: None)
  Receive Date: 20120710
  Receipt Date: 20120703
  Transmission Date: 20120928
  Serious: Yes (Hospitalization)
  Sender: FDA-Public Use
  Company Number: US-BAYER-2012-033421

PATIENT
  Age: 36 Year
  Sex: Female
  Weight: 68 kg

DRUGS (6)
  1. YASMIN [Suspect]
     Indication: CONTRACEPTION
     Dosage: UNK
     Route: 048
     Dates: start: 20050301, end: 20050501
  2. FLUCONAZOLE [Concomitant]
     Dosage: 150 MG, UNK
     Dates: start: 20091008, end: 20100428
  3. DROSPIRENONE AND ETHINYL ESTRADIOL [Suspect]
     Indication: CONTRACEPTION
     Dosage: UNK
     Route: 048
     Dates: start: 20090401, end: 20100501
  4. DROSPIRENONE AND ETHINYL ESTRADIOL [Suspect]
     Dosage: UNK
     Route: 048
     Dates: start: 20100112, end: 20100501
  5. YAZ [Suspect]
  6. YASMIN [Suspect]
     Dosage: UNK
     Route: 048
     Dates: start: 20070401, end: 20070401

REACTIONS (4)
  - PULMONARY EMBOLISM [None]
  - PULMONARY INFARCTION [None]
  - BACK PAIN [None]
  - DYSPNOEA [None]
